FAERS Safety Report 7878361-0 (Version None)
Quarter: 2011Q4

REPORT INFORMATION
  Report Type: 
  Country: None (occurrence: None)
  Receive Date: 20111101
  Receipt Date: 20111024
  Transmission Date: 20120403
  Serious: Yes (Other)
  Sender: FDA-Public Use
  Company Number: US-US-EMD SERONO, INC.-7091893

PATIENT
  Sex: Male

DRUGS (4)
  1. UNSPECIFIED ANTIANXIETY MEDICATION [Concomitant]
     Dates: end: 20110801
  2. PROPRANOLOL [Concomitant]
  3. UNSPECIFIED ANTIDEPRESSANTS [Concomitant]
     Dates: end: 20110801
  4. REBIF [Suspect]
     Indication: PRODUCT USED FOR UNKNOWN INDICATION
     Route: 058
     Dates: start: 20090107

REACTIONS (3)
  - RIB FRACTURE [None]
  - SYNCOPE [None]
  - FALL [None]
